FAERS Safety Report 8160005-4 (Version None)
Quarter: 2012Q1

REPORT INFORMATION
  Report Type: 
  Country: None (occurrence: None)
  Receive Date: 20120223
  Receipt Date: 20120220
  Transmission Date: 20120608
  Serious: Yes (Other)
  Sender: FDA-Public Use
  Company Number: US-GLAXOSMITHKLINE-A0967026A

PATIENT
  Age: 62 Year
  Sex: Male
  Weight: 95.5 kg

DRUGS (11)
  1. HUMALOG [Concomitant]
  2. VITAMIN D [Concomitant]
  3. AMLODIPINE [Concomitant]
  4. ATENOLOL [Concomitant]
  5. LEVEMIR [Concomitant]
  6. OMEPRAZOLE [Concomitant]
  7. VOTRIENT [Suspect]
     Dosage: 800MG PER DAY
     Route: 048
  8. ALLOPURINOL [Concomitant]
  9. FENOFIBRATE [Concomitant]
  10. LEVOXYL [Concomitant]
  11. LOVAZA [Concomitant]

REACTIONS (1)
  - RENAL CANCER [None]
